FAERS Safety Report 8170856-8 (Version None)
Quarter: 2012Q1

REPORT INFORMATION
  Report Type: 
  Country: None (occurrence: None)
  Receive Date: 20120104
  Receipt Date: 20111017
  Transmission Date: 20120608
  Serious: No
  Sender: FDA-Public Use
  Company Number: 2011HGS-002648

PATIENT
  Age: 25 Year
  Sex: Female
  Weight: 79.3795 kg

DRUGS (10)
  1. PREDNISONE [Concomitant]
  2. HUMALOG [Concomitant]
  3. ZANAFLEX (TIZANIDINE HYDROCHLORIDE) (TIZANIDINE HYDROCHLORIDE) [Concomitant]
  4. AMBIEN [Concomitant]
  5. BENLYSTA [Suspect]
     Indication: SYSTEMIC LUPUS ERYTHEMATOSUS
     Dosage: EVERY 2 WEEKS X 3 THEN EVERY 4 WEEKS, INTRAVENOUS DRIP
     Route: 041
     Dates: start: 20110921, end: 20111005
  6. VALIUM [Concomitant]
  7. PLAQUENIL (HYDROXYCHLOROQUINE SULFATE) (HYDROXYCHLOROQUINE SULFATE) [Concomitant]
  8. DILAUDID (HYDROMORPHONE HYDROCHLORIDE) (HYDROMORPHONE HYDROCHLORIDE) [Concomitant]
  9. BUSPAR (BUSPIRONE HYDROCHLORIDE) (BUSPIRONE HYDROCHLORIDE) [Concomitant]
  10. LANTUS INSULIN (INSULIN GLARGINE) (INSULIN GLARGINE) [Concomitant]

REACTIONS (3)
  - FATIGUE [None]
  - MYALGIA [None]
  - VOMITING [None]
